FAERS Safety Report 21166459 (Version 1)
Quarter: 2022Q3

REPORT INFORMATION
  Report Type: Spontaneous
  Country: TN (occurrence: TN)
  Receive Date: 20220803
  Receipt Date: 20220803
  Transmission Date: 20221026
  Serious: Yes (Other)
  Sender: FDA-Public Use
  Company Number: TN-PFIZER INC-PV202200033574

PATIENT
  Age: 39 Year
  Sex: Male

DRUGS (2)
  1. DOXYCYCLINE [Interacting]
     Active Substance: DOXYCYCLINE
     Indication: Plasmodium falciparum infection
     Dosage: 100 MG, DAILY
  2. QUININE [Interacting]
     Active Substance: QUININE
     Indication: Plasmodium falciparum infection
     Dosage: 750 MG, 3X/DAY
     Route: 048

REACTIONS (8)
  - Drug interaction [Unknown]
  - Drug level above therapeutic [Unknown]
  - Dizziness [Unknown]
  - Tinnitus [Unknown]
  - Hallucinations, mixed [Unknown]
  - Nightmare [Unknown]
  - Electrocardiogram QT prolonged [Unknown]
  - Toxicity to various agents [Unknown]
